FAERS Safety Report 9780771 (Version 2)
Quarter: 2014Q1

REPORT INFORMATION
  Report Type: Spontaneous
  Country: NO (occurrence: NO)
  Receive Date: 20131224
  Receipt Date: 20140205
  Transmission Date: 20141002
  Serious: Yes (Hospitalization)
  Sender: FDA-Public Use
  Company Number: PHHY2013NO150395

PATIENT
  Age: 69 Year
  Sex: Female

DRUGS (1)
  1. AFINITOR [Suspect]
     Indication: BREAST CANCER
     Dosage: UNK UKN, UNK
     Dates: start: 20131008, end: 20131023

REACTIONS (1)
  - Rhabdomyolysis [Recovering/Resolving]
